FAERS Safety Report 23443463 (Version 1)
Quarter: 2024Q1

REPORT INFORMATION
  Report Type: Report from Study
  Country: IE (occurrence: IE)
  Receive Date: 20240125
  Receipt Date: 20240125
  Transmission Date: 20240409
  Serious: Yes (Other)
  Sender: FDA-Public Use
  Company Number: IE-Merck Healthcare KGaA-2024004350

PATIENT
  Age: 22 Year
  Sex: Female

DRUGS (2)
  1. MAVENCLAD [Suspect]
     Active Substance: CLADRIBINE
     Indication: Relapsing-remitting multiple sclerosis
     Dosage: YEAR ONE WEEK ONE THERAPY. 2 DOSAGE FORM ON DAYS 1 TO 3 AND 1 DOSAGE FORM ON DAYS 4 AND 5.
     Route: 048
     Dates: start: 20231118
  2. MAVENCLAD [Suspect]
     Active Substance: CLADRIBINE
     Dosage: YEAR ONE WEEK FIVE THERAPY. 2 DOSAGE FORM ON DAYS 1 TO 3 AND 1 DOSAGE FORM ON DAYS 4 AND 5.
     Route: 048
     Dates: start: 20231216, end: 20231220

REACTIONS (1)
  - Lower respiratory tract infection [Unknown]

NARRATIVE: CASE EVENT DATE: 20240116
